FAERS Safety Report 9181106 (Version 1)
Quarter: 2013Q1

REPORT INFORMATION
  Report Type: Spontaneous
  Country: US (occurrence: US)
  Receive Date: 20130322
  Receipt Date: 20130322
  Transmission Date: 20140127
  Serious: No
  Sender: FDA-Public Use
  Company Number: US-MYLANLABS-2012S1005237

PATIENT
  Sex: Female

DRUGS (1)
  1. EMSAM [Suspect]
     Indication: DEPRESSION
     Dosage: 1 PATCH QD
     Route: 062
     Dates: start: 201201

REACTIONS (3)
  - Application site rash [Not Recovered/Not Resolved]
  - Application site erythema [Not Recovered/Not Resolved]
  - Application site pruritus [Not Recovered/Not Resolved]
